FAERS Safety Report 11645721 (Version 9)
Quarter: 2015Q4

REPORT INFORMATION
  Report Type: Spontaneous
  Country: ES (occurrence: ES)
  Receive Date: 20151020
  Receipt Date: 20151106
  Transmission Date: 20160304
  Serious: Yes (Hospitalization, Other)
  Sender: FDA-Public Use
  Company Number: ES-ABBVIE-15P-144-1483298-00

PATIENT
  Age: 53 Year
  Sex: Female
  Weight: 54 kg

DRUGS (5)
  1. EXVIERA [Suspect]
     Active Substance: DASABUVIR
     Indication: HEPATITIS C
     Route: 048
  2. RIBAVIRIN. [Suspect]
     Active Substance: RIBAVIRIN
     Indication: HEPATITIS C
     Dosage: 2-0-3; DAILY DOSE 1000 MILLIGRAM
     Route: 048
     Dates: start: 20151001, end: 20151008
  3. OMEPRAZOLE. [Concomitant]
     Active Substance: OMEPRAZOLE
     Indication: PRODUCT USED FOR UNKNOWN INDICATION
     Dosage: 20 MG/ML DAILY DOSE
     Route: 048
  4. VIEKIRAX [Suspect]
     Active Substance: OMBITASVIR\PARITAPREVIR\RITONAVIR
     Indication: HEPATITIS C
     Route: 048
     Dates: start: 20151001, end: 20151008
  5. SITAGLIPTINA [Concomitant]
     Indication: PRODUCT USED FOR UNKNOWN INDICATION
     Dosage: 25 MG DAILY DOSE
     Route: 065
     Dates: start: 201508

REACTIONS (13)
  - Nausea [Recovered/Resolved]
  - Pruritus [Recovering/Resolving]
  - Vomiting [Recovered/Resolved]
  - Choluria [Recovering/Resolving]
  - Ascites [Recovering/Resolving]
  - Malaise [Unknown]
  - Oedema peripheral [Recovering/Resolving]
  - Hyperbilirubinaemia [Recovering/Resolving]
  - Hepatotoxicity [Recovering/Resolving]
  - Child-Pugh-Turcotte score increased [Not Recovered/Not Resolved]
  - Asthenia [Unknown]
  - Pyrexia [Unknown]
  - Hepatic cirrhosis [Not Recovered/Not Resolved]

NARRATIVE: CASE EVENT DATE: 201510
